FAERS Safety Report 7240270-8 (Version None)
Quarter: 2011Q1

REPORT INFORMATION
  Report Type: 
  Country: None (occurrence: None)
  Receive Date: 20110124
  Receipt Date: 20110116
  Transmission Date: 20110831
  Serious: Yes (Life-Threatening, Other)
  Sender: FDA-Public Use
  Company Number: PT-AMGEN-PRTSP2010007053

PATIENT
  Age: 76 Year
  Sex: Female

DRUGS (5)
  1. BONIVA [Concomitant]
     Indication: OSTEOPOROSIS
     Dosage: UNK
     Route: 048
     Dates: start: 20090301
  2. ENBREL [Suspect]
     Indication: PSORIATIC ARTHROPATHY
     Dosage: 50 MG, WEEKLY
     Route: 058
     Dates: start: 20090101, end: 20101001
  3. PREDNISONE [Concomitant]
     Indication: PSORIATIC ARTHROPATHY
     Dosage: 2.5 MG, UNK
     Route: 048
     Dates: start: 20081201
  4. METHOTREXATE [Concomitant]
     Indication: PSORIATIC ARTHROPATHY
     Dosage: 12.5 MG, UNK
     Route: 048
     Dates: start: 20050720, end: 20101001
  5. CELECOXIB [Concomitant]
     Indication: PSORIATIC ARTHROPATHY
     Dosage: 200 MG, UNK
     Route: 048
     Dates: start: 20030101

REACTIONS (1)
  - BLADDER NEOPLASM [None]
